FAERS Safety Report 5401236-3 (Version None)
Quarter: 2007Q3

REPORT INFORMATION
  Report Type: 
  Country: None (occurrence: None)
  Receive Date: 20070731
  Receipt Date: 20070720
  Transmission Date: 20080115
  Serious: Yes (Other)
  Sender: FDA-Public Use
  Company Number: GB-AVENTIS-200713585EU

PATIENT
  Age: 37 Year
  Sex: Male

DRUGS (2)
  1. CLEXANE [Suspect]
     Indication: DEEP VEIN THROMBOSIS
     Route: 058
     Dates: start: 20070629, end: 20070704
  2. NOVOMIX                            /01475801/ [Concomitant]
     Route: 058
     Dates: start: 20050101

REACTIONS (1)
  - HYPERKALAEMIA [None]
